FAERS Safety Report 9720790 (Version 2)
Quarter: 2014Q1

REPORT INFORMATION
  Report Type: Spontaneous
  Country: US (occurrence: US)
  Receive Date: 20131129
  Receipt Date: 20140128
  Transmission Date: 20141002
  Serious: Yes (Death, Hospitalization)
  Sender: FDA-Public Use
  Company Number: US-JNJFOC-20131116438

PATIENT
  Age: 65 Year
  Sex: Female
  Weight: 82.56 kg

DRUGS (8)
  1. SIMPONI ARIA [Suspect]
     Indication: COLITIS ULCERATIVE
     Route: 042
     Dates: start: 201308, end: 201308
  2. SIMPONI ARIA [Suspect]
     Indication: RHEUMATOID ARTHRITIS
     Route: 042
     Dates: start: 201308, end: 201308
  3. METHOTREXATE [Concomitant]
     Indication: RHEUMATOID ARTHRITIS
     Route: 065
     Dates: start: 201002
  4. PREDNISONE [Concomitant]
     Indication: RHEUMATOID ARTHRITIS
     Route: 065
     Dates: start: 201001
  5. CYMBALTA [Concomitant]
     Route: 065
  6. GABAPENTIN [Concomitant]
     Route: 065
  7. ZYRTEC [Concomitant]
     Route: 065
  8. FLEXEN NOS [Concomitant]
     Route: 065

REACTIONS (3)
  - Urosepsis [Fatal]
  - Respiratory failure [Fatal]
  - Staphylococcal sepsis [Fatal]
